APPROVED DRUG PRODUCT: ASENAPINE MALEATE
Active Ingredient: ASENAPINE MALEATE
Strength: EQ 5MG BASE
Dosage Form/Route: TABLET;SUBLINGUAL
Application: A205960 | Product #003 | TE Code: AB
Applicant: BRECKENRIDGE PHARMACEUTICAL INC
Approved: Mar 8, 2021 | RLD: No | RS: No | Type: RX